FAERS Safety Report 18550548 (Version 1)
Quarter: 2020Q4

REPORT INFORMATION
  Report Type: Spontaneous
  Country: US (occurrence: US)
  Receive Date: 20201126
  Receipt Date: 20201126
  Transmission Date: 20210114
  Serious: No
  Sender: FDA-Public Use
  Company Number: US-TEVA-2020-US-1853684

PATIENT
  Age: 37 Year
  Sex: Female

DRUGS (2)
  1. TREPROSTINIL MDV TEVA [Suspect]
     Active Substance: TREPROSTINIL
     Indication: PULMONARY ARTERIAL HYPERTENSION
     Dosage: 20 NG/KG/MIN 37 ML/24 HR INTRAVENOUS
     Route: 042
     Dates: start: 20200729
  2. AMBRISENTAN [Suspect]
     Active Substance: AMBRISENTAN
     Route: 065

REACTIONS (3)
  - Injection site infection [Unknown]
  - Migraine [Unknown]
  - Product container issue [Unknown]

NARRATIVE: CASE EVENT DATE: 20201022
